FAERS Safety Report 5977067-2 (Version None)
Quarter: 2008Q4

REPORT INFORMATION
  Report Type: 
  Country: None (occurrence: None)
  Receive Date: 20081203
  Receipt Date: 20081124
  Transmission Date: 20090506
  Serious: Yes (Other)
  Sender: FDA-Public Use
  Company Number: US-BIOGENIDEC-2008BI015363

PATIENT
  Age: 24 Year
  Sex: Female
  Weight: 95 kg

DRUGS (2)
  1. AVONEX [Suspect]
     Indication: MULTIPLE SCLEROSIS
     Route: 030
     Dates: start: 20050101, end: 20080226
  2. AVONEX [Suspect]
     Route: 030
     Dates: start: 20080622

REACTIONS (2)
  - ABORTION SPONTANEOUS [None]
  - CERVIX DISORDER [None]
